FAERS Safety Report 11071525 (Version 1)
Quarter: 2015Q2

REPORT INFORMATION
  Report Type: Spontaneous
  Country: US (occurrence: None)
  Receive Date: 20150424
  Receipt Date: 20150424
  Transmission Date: 20150821
  Serious: Yes (Other)
  Sender: FDA-Public Use
  Company Number: 2831368

PATIENT
  Age: 60 Year
  Sex: Female

DRUGS (1)
  1. KETOROLAC TROMETHAMINE INJECTION 30MG/ML (KETOROLAC TROMETAMOL) [Suspect]
     Active Substance: KETOROLAC TROMETHAMINE
     Indication: MIGRAINE
     Route: 030

REACTIONS (5)
  - Injection site nodule [None]
  - Injection site inflammation [None]
  - Muscle spasms [None]
  - Cellulitis [None]
  - Drug administered at inappropriate site [None]

NARRATIVE: CASE EVENT DATE: 201502
